FAERS Safety Report 4282871-5 (Version None)
Quarter: 2004Q1

REPORT INFORMATION
  Report Type: 
  Country: None (occurrence: None)
  Receive Date: 20040130
  Receipt Date: 20030801
  Transmission Date: 20041129
  Serious: No
  Sender: FDA-Public Use
  Company Number: US-BRISTOL-MYERS SQUIBB COMPANY-12344495

PATIENT
  Age: 48 Year
  Sex: Female

DRUGS (4)
  1. SERZONE [Suspect]
     Indication: MAJOR DEPRESSION
     Dosage: TAKING ^SINCE BEFORE 2002^.
     Route: 048
  2. DESYREL [Concomitant]
     Dosage: 100MG, ONCE, FOR SEVERAL MONTHS.
  3. AMBIEN [Concomitant]
     Dosage: 10MG ONCE AT NIGHT FOR SEVERAL MONTHS.
  4. XANAX [Concomitant]
     Dosage: 1.5MG, AT BEDTIME ONLY, FOR SEVERAL MONTHS.

REACTIONS (2)
  - CONDITION AGGRAVATED [None]
  - HAEMANGIOMA OF LIVER [None]
